FAERS Safety Report 8980325 (Version 1)
Quarter: 2012Q4

REPORT INFORMATION
  Report Type: 
  Country: BR (occurrence: BR)
  Receive Date: 20121221
  Receipt Date: 20121221
  Transmission Date: 20130627
  Serious: Yes (Other)
  Sender: FDA-Public Use
  Company Number: PHHY2012BR115561

PATIENT
  Sex: Male
  Weight: 100 kg

DRUGS (9)
  1. DIOVAN HCT [Suspect]
     Indication: HYPERTENSION
     Dosage: 1 DF(80 mg vals/ 12.5 mg HCT), daily
     Route: 048
  2. LYRICA [Concomitant]
  3. RIVOTRIL [Concomitant]
  4. FLUOXETIN [Concomitant]
  5. OMEPRAZOLE [Concomitant]
  6. SIMVASTATIN [Concomitant]
  7. METFORMIN [Concomitant]
  8. TYLEX CD [Concomitant]
  9. ALENIA [Concomitant]

REACTIONS (4)
  - Spinal vascular disorder [Not Recovered/Not Resolved]
  - Muscle spasms [Not Recovered/Not Resolved]
  - Paraplegia [Not Recovered/Not Resolved]
  - Aneurysm [Recovering/Resolving]
